FAERS Safety Report 19766854 (Version 1)
Quarter: 2021Q3

REPORT INFORMATION
  Report Type: Spontaneous
  Country: JP (occurrence: JP)
  Receive Date: 20210831
  Receipt Date: 20210831
  Transmission Date: 20211014
  Serious: Yes (Disabling, Other)
  Sender: FDA-Public Use
  Company Number: JP-AMGEN-JPNSP2021102334

PATIENT
  Age: 7 Decade
  Sex: Female

DRUGS (1)
  1. VECTIBIX [Suspect]
     Active Substance: PANITUMUMAB
     Indication: COLON CANCER
     Dosage: UNK
     Route: 042
     Dates: start: 20210601

REACTIONS (4)
  - Disease progression [Unknown]
  - Skin disorder [Unknown]
  - Hepatic failure [Unknown]
  - Colon cancer [Unknown]

NARRATIVE: CASE EVENT DATE: 202106
